FAERS Safety Report 7171494-6 (Version None)
Quarter: 2010Q4

REPORT INFORMATION
  Report Type: 
  Country: None (occurrence: None)
  Receive Date: 20101217
  Receipt Date: 20101210
  Transmission Date: 20110411
  Serious: Yes (Death, Other)
  Sender: FDA-Public Use
  Company Number: FR-PFIZER INC-2010168985

PATIENT
  Age: 63 Year
  Sex: Female

DRUGS (5)
  1. ZOLOFT [Suspect]
     Indication: DEPRESSION
     Dosage: 1 DF, 1X/DAY
     Route: 048
     Dates: start: 20060407, end: 20101110
  2. ALDACTAZINE [Suspect]
     Indication: HYPERTENSION
     Dosage: 0.5 DF, 1X/DAY
     Route: 048
     Dates: end: 20101110
  3. DEPAMIDE [Suspect]
     Indication: DEPRESSION
     Dosage: 300 MG, UNK
     Route: 048
     Dates: start: 19960426, end: 20101110
  4. LYSANXIA [Suspect]
     Indication: DEPRESSION
     Dosage: 10 MG, 1X/DAY
     Route: 048
     Dates: end: 20101110
  5. IDEOS [Suspect]
     Dosage: 500MG/400 IU X 2/DAY
     Route: 048
     Dates: end: 20101110

REACTIONS (2)
  - PANCREATITIS HAEMORRHAGIC [None]
  - SUDDEN DEATH [None]
